FAERS Safety Report 10648341 (Version 2)
Quarter: 2014Q4

REPORT INFORMATION
  Report Type: Report from Study
  Country: US (occurrence: US)
  Receive Date: 20141212
  Receipt Date: 20141212
  Transmission Date: 20150529
  Serious: Yes (Hospitalization)
  Sender: FDA-Public Use
  Company Number: US-BAYER-2014-143761

PATIENT
  Age: 60 Year
  Sex: Female
  Weight: 98.19 kg

DRUGS (23)
  1. SORAFENIB (RAF KINASE INHIBITOR) [Suspect]
     Active Substance: SORAFENIB
     Indication: THYROID CANCER
     Dosage: 600 MG, QD
     Route: 048
     Dates: start: 20131003, end: 20131210
  2. EVEROLIMUS [Suspect]
     Active Substance: EVEROLIMUS
     Indication: THYROID CANCER
     Dosage: 7.5 MG, QD
     Route: 048
     Dates: start: 20131003, end: 20131210
  3. PANTOPRAZOLE SODIUM [Concomitant]
     Active Substance: PANTOPRAZOLE SODIUM
     Dosage: 40 MG TBEC
     Route: 048
  4. VITAMIN D3 [Concomitant]
     Active Substance: CHOLECALCIFEROL
     Dosage: 2 CAPS ONCE A DAY
  5. EVEROLIMUS [Suspect]
     Active Substance: EVEROLIMUS
     Indication: THYROID CANCER
     Dosage: 5 MG, QD
     Route: 048
     Dates: start: 20131212, end: 20140110
  6. CODEINE [Concomitant]
     Active Substance: CODEINE
  7. EVEROLIMUS [Suspect]
     Active Substance: EVEROLIMUS
     Indication: THYROID CANCER
     Dosage: 5 MG, QD
     Route: 048
     Dates: start: 2014, end: 20141101
  8. SIMETHICONE [Concomitant]
     Active Substance: DIMETHICONE\SILICON DIOXIDE\SIMETHICONE
  9. IBUPROFEN. [Concomitant]
     Active Substance: IBUPROFEN
  10. EVEROLIMUS [Suspect]
     Active Substance: EVEROLIMUS
     Indication: THYROID CANCER
     Dosage: 5 MG, QD
     Route: 048
     Dates: start: 2014, end: 20140413
  11. FOLIC ACID. [Concomitant]
     Active Substance: FOLIC ACID
     Dosage: 800 MCG/24HR, QD
     Route: 048
  12. SORAFENIB (RAF KINASE INHIBITOR) [Suspect]
     Active Substance: SORAFENIB
     Indication: THYROID CANCER
     Dosage: 200 MG, QD
     Route: 048
     Dates: start: 20140115, end: 20140413
  13. MIRTAZAPINE. [Concomitant]
     Active Substance: MIRTAZAPINE
  14. PERCOCET [Concomitant]
     Active Substance: ACETAMINOPHEN\OXYCODONE HYDROCHLORIDE
  15. SYNTHROID [Concomitant]
     Active Substance: LEVOTHYROXINE SODIUM
     Dosage: 175 MCG/24HR, BID
     Route: 048
  16. BETAMETHASONE [Concomitant]
     Active Substance: BETAMETHASONE
  17. FAMOTIDINE. [Concomitant]
     Active Substance: FAMOTIDINE
  18. SORAFENIB (RAF KINASE INHIBITOR) [Suspect]
     Active Substance: SORAFENIB
     Indication: THYROID CANCER
     Dosage: 400 MG, QD
     Route: 048
     Dates: start: 2014, end: 20141101
  19. CEPHALEXIN. [Concomitant]
     Active Substance: CEPHALEXIN
  20. LORAZEPAM. [Concomitant]
     Active Substance: LORAZEPAM
     Dosage: 0.5 MG, BID
     Route: 048
  21. SORAFENIB (RAF KINASE INHIBITOR) [Suspect]
     Active Substance: SORAFENIB
     Indication: THYROID CANCER
     Dosage: DAILY DOSE 600 MG
     Route: 048
     Dates: start: 20131212, end: 20140113
  22. LOPERAMIDE [Concomitant]
     Active Substance: LOPERAMIDE
  23. ONDANSETRON [Concomitant]
     Active Substance: ONDANSETRON

REACTIONS (4)
  - Acute respiratory distress syndrome [Not Recovered/Not Resolved]
  - Dyspnoea [Not Recovered/Not Resolved]
  - Cellulitis [Not Recovered/Not Resolved]
  - Pneumonia [None]

NARRATIVE: CASE EVENT DATE: 20140920
